FAERS Safety Report 20206215 (Version 7)
Quarter: 2022Q3

REPORT INFORMATION
  Report Type: Report from Study
  Country: US (occurrence: US)
  Receive Date: 20211220
  Receipt Date: 20220701
  Transmission Date: 20221027
  Serious: Yes (Hospitalization, Other)
  Sender: FDA-Public Use
  Company Number: US-TAKEDA-2021TUS078980

PATIENT
  Age: 36 Year
  Sex: Female
  Weight: 61 kg

DRUGS (24)
  1. TEDUGLUTIDE [Suspect]
     Active Substance: TEDUGLUTIDE
     Indication: Short-bowel syndrome
     Dosage: 1 MILLIGRAM/KILOGRAM, QD
     Route: 042
     Dates: start: 20210128, end: 20210503
  2. TEDUGLUTIDE [Suspect]
     Active Substance: TEDUGLUTIDE
     Indication: Short-bowel syndrome
     Dosage: 1 MILLIGRAM/KILOGRAM, QD
     Route: 042
     Dates: start: 20210128, end: 20210503
  3. TEDUGLUTIDE [Suspect]
     Active Substance: TEDUGLUTIDE
     Indication: Short-bowel syndrome
     Dosage: 1 MILLIGRAM/KILOGRAM, QD
     Route: 042
     Dates: start: 20210128, end: 20210503
  4. TEDUGLUTIDE [Suspect]
     Active Substance: TEDUGLUTIDE
     Indication: Short-bowel syndrome
     Dosage: 1 MILLIGRAM/KILOGRAM, QD
     Route: 042
     Dates: start: 20210128, end: 20210503
  5. TEDUGLUTIDE [Suspect]
     Active Substance: TEDUGLUTIDE
     Dosage: 3 MILLIGRAM/KILOGRAM, QD
     Route: 042
     Dates: start: 20210503
  6. TEDUGLUTIDE [Suspect]
     Active Substance: TEDUGLUTIDE
     Dosage: 3 MILLIGRAM/KILOGRAM, QD
     Route: 042
     Dates: start: 20210503
  7. TEDUGLUTIDE [Suspect]
     Active Substance: TEDUGLUTIDE
     Dosage: 3 MILLIGRAM/KILOGRAM, QD
     Route: 042
     Dates: start: 20210503
  8. TEDUGLUTIDE [Suspect]
     Active Substance: TEDUGLUTIDE
     Dosage: 3 MILLIGRAM/KILOGRAM, QD
     Route: 042
     Dates: start: 20210503
  9. FLAGYL [Concomitant]
     Active Substance: METRONIDAZOLE\METRONIDAZOLE HYDROCHLORIDE
     Indication: Sepsis
     Dosage: 500 MILLIGRAM, Q8HR
     Route: 048
     Dates: start: 20211203, end: 20211203
  10. FLAGYL [Concomitant]
     Active Substance: METRONIDAZOLE\METRONIDAZOLE HYDROCHLORIDE
     Indication: Infection
  11. ZOFRAN [Concomitant]
     Active Substance: ONDANSETRON HYDROCHLORIDE
     Indication: Nausea
     Dosage: 4 MILLIGRAM
     Route: 042
     Dates: start: 20211203, end: 20211208
  12. HYDROMORPHONE [Concomitant]
     Active Substance: HYDROMORPHONE
     Indication: Pain
     Dosage: 1 MILLIGRAM, Q4HR
     Route: 042
     Dates: start: 20211203, end: 20211208
  13. HYDROMORPHONE [Concomitant]
     Active Substance: HYDROMORPHONE
     Dosage: 1 MILLIGRAM
     Route: 065
  14. DIPHENHYDRAMINE [Concomitant]
     Active Substance: DIPHENHYDRAMINE
     Indication: Pruritus
     Dosage: 25 MILLIGRAM, Q6HR
     Route: 048
     Dates: start: 20211203
  15. ISOVUE [Concomitant]
     Active Substance: IOPAMIDOL
     Indication: Contrast media allergy
     Dosage: UNK UNK, QD
     Route: 042
     Dates: start: 20211203, end: 20211203
  16. ISOVUE [Concomitant]
     Active Substance: IOPAMIDOL
     Dosage: 61 MILLIGRAM, QD
     Route: 065
  17. ISOVUE [Concomitant]
     Active Substance: IOPAMIDOL
     Dosage: 61 MILLIGRAM
     Route: 065
  18. VIMPAT [Concomitant]
     Active Substance: LACOSAMIDE
     Indication: Anticonvulsant drug level
     Dosage: 100 MILLIGRAM, QD
     Route: 048
     Dates: start: 20211203
  19. LOPERAMIDE [Concomitant]
     Active Substance: LOPERAMIDE
     Dosage: 2 MILLIGRAM, Q4HR
     Route: 048
  20. ELIQUIS [Concomitant]
     Active Substance: APIXABAN
     Dosage: 5 MILLIGRAM, BID
     Route: 048
  21. PERCOCET [Concomitant]
     Active Substance: ACETAMINOPHEN\OXYCODONE HYDROCHLORIDE
     Indication: Pain
     Dosage: 5 MILLIGRAM, Q4WEEKS
     Route: 048
     Dates: start: 20210718, end: 20210729
  22. PERCOCET [Concomitant]
     Active Substance: ACETAMINOPHEN\OXYCODONE HYDROCHLORIDE
     Dosage: 10 MILLIGRAM, Q4WEEKS
     Route: 048
     Dates: start: 20210718, end: 20210729
  23. AMBIEN [Concomitant]
     Active Substance: ZOLPIDEM TARTRATE
     Indication: Insomnia
     Dosage: 5 MILLIGRAM, QD
     Route: 048
     Dates: start: 20210718, end: 20210729
  24. TECHNETIUM 99M IDP [Concomitant]
     Indication: Imaging procedure
     Dosage: UNK UNK, QD
     Route: 058
     Dates: start: 20210717, end: 20210717

REACTIONS (9)
  - Leukocytosis [Recovered/Resolved]
  - Leukopenia [Recovered/Resolved]
  - Anaemia [Not Recovered/Not Resolved]
  - Hyponatraemia [Recovered/Resolved]
  - Blood alkaline phosphatase increased [Not Recovered/Not Resolved]
  - Aspartate aminotransferase increased [Recovered/Resolved]
  - Alanine aminotransferase increased [Not Recovered/Not Resolved]
  - Ascites [Not Recovered/Not Resolved]
  - Seizure [Recovered/Resolved]

NARRATIVE: CASE EVENT DATE: 20211203
